FAERS Safety Report 14452285 (Version 1)
Quarter: 2018Q1

REPORT INFORMATION
  Report Type: Report from Study
  Country: ZA (occurrence: ZA)
  Receive Date: 20180129
  Receipt Date: 20180129
  Transmission Date: 20180509
  Serious: Yes (Death)
  Sender: FDA-Public Use
  Company Number: PHHY2018ZA013379

PATIENT
  Sex: Female

DRUGS (1)
  1. EXFORGE [Suspect]
     Active Substance: AMLODIPINE BESYLATE\VALSARTAN
     Indication: HYPERTENSION
     Dosage: (5 MG AMLODIPINE/160 MG VALSARTAN), UNK
     Route: 048
     Dates: start: 201709

REACTIONS (4)
  - Bronchitis [Fatal]
  - Asthma [Fatal]
  - Pneumonia [Fatal]
  - Emphysema [Fatal]
